FAERS Safety Report 6484901-9 (Version None)
Quarter: 2009Q4

REPORT INFORMATION
  Report Type: 
  Country: None (occurrence: None)
  Receive Date: 20091209
  Receipt Date: 20090606
  Transmission Date: 20100525
  Serious: No
  Sender: FDA-Public Use
  Company Number: US-AMGEN-KDL350524

PATIENT
  Sex: Female

DRUGS (1)
  1. ENBREL [Suspect]
     Indication: RHEUMATOID ARTHRITIS
     Route: 058
     Dates: start: 20090603

REACTIONS (6)
  - AGEUSIA [None]
  - DECREASED APPETITE [None]
  - FATIGUE [None]
  - GLOSSODYNIA [None]
  - ORAL PAIN [None]
  - TONGUE DISCOLOURATION [None]
